FAERS Safety Report 23779855 (Version 1)
Quarter: 2024Q2

REPORT INFORMATION
  Report Type: Report from Study
  Country: CN (occurrence: CN)
  Receive Date: 20240424
  Receipt Date: 20240424
  Transmission Date: 20240716
  Serious: Yes (Other)
  Sender: FDA-Public Use
  Company Number: CN-JNJFOC-20240443126

PATIENT

DRUGS (2)
  1. DARATUMUMAB [Suspect]
     Active Substance: DARATUMUMAB
     Indication: Plasma cell myeloma
     Route: 065
  2. DARATUMUMAB [Suspect]
     Active Substance: DARATUMUMAB
     Indication: Amyloidosis

REACTIONS (143)
  - Bronchostenosis [Unknown]
  - Choroidal effusion [Unknown]
  - Angle closure glaucoma [Unknown]
  - Acute myopia [Unknown]
  - Atrial fibrillation [Unknown]
  - Cardiac failure [Unknown]
  - Leukoencephalopathy [Unknown]
  - Meningitis aseptic [Unknown]
  - Posterior reversible encephalopathy syndrome [Unknown]
  - Tumour lysis syndrome [Unknown]
  - Disseminated intravascular coagulation [Unknown]
  - Hyperviscosity syndrome [Unknown]
  - Acute coronary syndrome [Unknown]
  - Sudden hearing loss [Unknown]
  - Diverticular perforation [Unknown]
  - Ileus [Unknown]
  - Hypertensive crisis [Unknown]
  - Stem cell transplant [Unknown]
  - Septic shock [Unknown]
  - Cytokine release syndrome [Unknown]
  - Respiratory distress [Unknown]
  - Spinal cord compression [Unknown]
  - Leukaemia [Unknown]
  - Hypogammaglobulinaemia [Unknown]
  - Bone marrow transplant [Unknown]
  - Guillain-Barre syndrome [Unknown]
  - Pneumocystis jirovecii pneumonia [Unknown]
  - Pneumonitis [Unknown]
  - Pulmonary oedema [Unknown]
  - Radiotherapy [Unknown]
  - Respiratory failure [Unknown]
  - Progressive multifocal leukoencephalopathy [Unknown]
  - Laryngeal oedema [Unknown]
  - Pneumonia cytomegaloviral [Unknown]
  - Meningitis listeria [Unknown]
  - Pseudomembranous colitis [Unknown]
  - Visceral leishmaniasis [Unknown]
  - Disseminated cryptococcosis [Unknown]
  - Injection related reaction [Unknown]
  - Transfusion-related acute lung injury [Unknown]
  - Blood lactate dehydrogenase increased [Unknown]
  - Peripheral sensorimotor neuropathy [Unknown]
  - Hypoxia [Unknown]
  - Respiratory distress [Unknown]
  - Hypercalcaemia [Unknown]
  - Febrile neutropenia [Unknown]
  - Pancytopenia [Unknown]
  - Leukopenia [Unknown]
  - Myelosuppression [Unknown]
  - Bone marrow failure [Unknown]
  - Haemolysis [Unknown]
  - Cardiac amyloidosis [Unknown]
  - Sinus node dysfunction [Unknown]
  - Cytomegalovirus enterocolitis [Unknown]
  - Ileus paralytic [Unknown]
  - Amyloidosis [Unknown]
  - Bronchopulmonary aspergillosis [Unknown]
  - Hepatitis E [Unknown]
  - Hepatitis B [Unknown]
  - Erysipelas [Unknown]
  - Listeriosis [Unknown]
  - Listeria sepsis [Unknown]
  - Pneumonia pneumococcal [Unknown]
  - Cerebral toxoplasmosis [Unknown]
  - Pneumonia cryptococcal [Unknown]
  - Meningitis cryptococcal [Unknown]
  - JC virus infection [Unknown]
  - Intervertebral discitis [Unknown]
  - Endocarditis bacterial [Unknown]
  - Delayed engraftment [Unknown]
  - Pathological fracture [Unknown]
  - Polyneuropathy [Unknown]
  - Anaphylactic reaction [Unknown]
  - Plasma cell myeloma [Unknown]
  - Pneumonia [Unknown]
  - Anaemia [Unknown]
  - Bacteraemia [Unknown]
  - Pneumonia bacterial [Unknown]
  - Urosepsis [Unknown]
  - Infusion related reaction [Unknown]
  - Escherichia sepsis [Unknown]
  - Pneumonia influenzal [Unknown]
  - Thrombocytopenia [Unknown]
  - Peripheral sensory neuropathy [Unknown]
  - Hepatitis B reactivation [Unknown]
  - Neutropenia [Unknown]
  - Pseudomonal bacteraemia [Unknown]
  - Bronchospasm [Unknown]
  - Wheezing [Unknown]
  - Nasal congestion [Unknown]
  - Rhinorrhoea [Unknown]
  - Stridor [Unknown]
  - Transfusion [Unknown]
  - Dialysis [Unknown]
  - Bacterial infection [Unknown]
  - Cytomegalovirus infection [Unknown]
  - Dyspnoea [Unknown]
  - Cough [Unknown]
  - Parainfluenzae virus infection [Unknown]
  - Incorrect drug administration rate [Unknown]
  - Sinus congestion [Unknown]
  - Conjunctival oedema [Unknown]
  - Throat tightness [Unknown]
  - Infection [Unknown]
  - Lymphopenia [Unknown]
  - Pyrexia [Unknown]
  - Chills [Unknown]
  - Sneezing [Unknown]
  - Tachypnoea [Unknown]
  - Upper respiratory tract inflammation [Unknown]
  - Flushing [Unknown]
  - Oropharyngeal discomfort [Unknown]
  - Immunoglobulins decreased [Unknown]
  - Haematotoxicity [Unknown]
  - Tachycardia [Unknown]
  - Atrial flutter [Unknown]
  - Chest discomfort [Unknown]
  - Congenital aplasia [Unknown]
  - Ocular toxicity [Unknown]
  - Pseudomyopia [Unknown]
  - Oral pruritus [Unknown]
  - Vaccination failure [Unknown]
  - Multimorbidity [Unknown]
  - Hepatic function abnormal [Unknown]
  - Gastroenteritis [Unknown]
  - Varicella zoster virus infection [Unknown]
  - Human polyomavirus infection [Unknown]
  - Orchitis [Unknown]
  - H1N1 influenza [Unknown]
  - Blood stem cell harvest failure [Unknown]
  - Oxygen saturation decreased [Unknown]
  - Light chain analysis increased [Unknown]
  - Monoclonal immunoglobulin increased [Unknown]
  - Blood immunoglobulin M increased [Unknown]
  - Blood immunoglobulin A increased [Unknown]
  - Bone lesion [Unknown]
  - Osteolysis [Unknown]
  - Allodynia [Unknown]
  - Body dysmorphic disorder [Unknown]
  - Viral infection [Unknown]
  - Extravasation [Unknown]
  - Product preparation error [Unknown]
  - Off label use [Unknown]
